FAERS Safety Report 6033951-5 (Version None)
Quarter: 2009Q1

REPORT INFORMATION
  Report Type: 
  Country: None (occurrence: None)
  Receive Date: 20090112
  Receipt Date: 20081231
  Transmission Date: 20090719
  Serious: Yes (Hospitalization, Other)
  Sender: FDA-Public Use
  Company Number: PHHY2008GB31524

PATIENT
  Sex: Female

DRUGS (2)
  1. CLOZARIL [Suspect]
     Indication: SCHIZOPHRENIA
     Dosage: UNK
     Dates: start: 19941107
  2. CLOZARIL [Suspect]
     Dosage: 100 MG/DAY

REACTIONS (2)
  - NEOPLASM MALIGNANT [None]
  - THERAPY CESSATION [None]
